FAERS Safety Report 9723096 (Version 1)
Quarter: 2013Q4

REPORT INFORMATION
  Report Type: Spontaneous
  Country: US (occurrence: None)
  Receive Date: 20131127
  Receipt Date: 20131127
  Transmission Date: 20140711
  Serious: Yes (Disabling)
  Sender: FDA-Public Use
  Company Number: None

PATIENT
  Age: 49 Year
  Sex: Female
  Weight: 54.43 kg

DRUGS (3)
  1. GENTAMICIN [Suspect]
     Indication: DIVERTICULUM
     Dosage: 300MG ?Q24HR  NPB IV
     Route: 042
     Dates: start: 20070921, end: 20070928
  2. GENTAMICIN [Suspect]
     Indication: PERITONITIS
     Dosage: 300MG ?Q24HR  NPB IV
     Route: 042
     Dates: start: 20070921, end: 20070928
  3. GENTAMICIN [Suspect]
     Indication: DIVERTICULITIS
     Dosage: 300MG ?Q24HR  NPB IV
     Route: 042
     Dates: start: 20070921, end: 20070928

REACTIONS (3)
  - Ototoxicity [None]
  - Balance disorder [None]
  - Hypoacusis [None]
